FAERS Safety Report 5866499-9 (Version None)
Quarter: 2008Q3

REPORT INFORMATION
  Report Type: 
  Country: None (occurrence: None)
  Receive Date: 20080902
  Receipt Date: 20080829
  Transmission Date: 20090109
  Serious: Yes (Death)
  Sender: FDA-Public Use
  Company Number: PHHY2008DE19568

PATIENT

DRUGS (2)
  1. RASILEZ [Suspect]
     Indication: HYPERTENSION
     Dosage: 150 MG/DAY
     Dates: start: 20080715, end: 20080701
  2. RASILEZ [Suspect]
     Dosage: 300 MG/DAY
     Dates: start: 20080701

REACTIONS (2)
  - CYANOSIS [None]
  - PULMONARY EMBOLISM [None]
